FAERS Safety Report 23439465 (Version 1)
Quarter: 2024Q1

REPORT INFORMATION
  Report Type: Spontaneous
  Country: US (occurrence: None)
  Receive Date: 20240124
  Receipt Date: 20240124
  Transmission Date: 20240410
  Serious: Yes (Death)
  Sender: FDA-Public Use
  Company Number: None

PATIENT
  Age: 42 Year
  Sex: Female

DRUGS (1)
  1. TADALAFIL [Suspect]
     Active Substance: TADALAFIL
     Indication: Pulmonary hypertension
     Dosage: 2O MG ORAL??TAKE 2 TABLETS BY MOUTH EVERY DAY
     Route: 048
     Dates: start: 20231223, end: 20240106

REACTIONS (1)
  - Death [None]

NARRATIVE: CASE EVENT DATE: 20240106
